FAERS Safety Report 22268890 (Version 5)
Quarter: 2023Q2

REPORT INFORMATION
  Report Type: Spontaneous
  Country: RU (occurrence: RU)
  Receive Date: 20230501
  Receipt Date: 20230602
  Transmission Date: 20230721
  Serious: Yes (Hospitalization, Other)
  Sender: FDA-Public Use
  Company Number: RU-KOREA IPSEN Pharma-2023-09586

PATIENT
  Age: 30 Year
  Sex: Female

DRUGS (3)
  1. DYSPORT [Suspect]
     Active Substance: ABOBOTULINUMTOXINA
     Indication: Skin wrinkling
     Route: 030
     Dates: start: 20230405, end: 20230405
  2. DYSPORT [Suspect]
     Active Substance: ABOBOTULINUMTOXINA
     Indication: Skin wrinkling
  3. DYSPORT [Suspect]
     Active Substance: ABOBOTULINUMTOXINA
     Indication: Skin wrinkling

REACTIONS (2)
  - Cranial nerve paralysis [Unknown]
  - Eyelid ptosis [Unknown]

NARRATIVE: CASE EVENT DATE: 20230413
